FAERS Safety Report 7965132-X (Version None)
Quarter: 2011Q4

REPORT INFORMATION
  Report Type: 
  Country: None (occurrence: None)
  Receive Date: 20111208
  Receipt Date: 20111108
  Transmission Date: 20120403
  Serious: No
  Sender: FDA-Public Use
  Company Number: US-BAYER-2011-108910

PATIENT
  Age: 48 Year
  Sex: Female
  Weight: 74.83 kg

DRUGS (1)
  1. ALEVE (CAPLET) [Suspect]
     Indication: PAIN
     Dosage: 2 DF, TID
     Route: 048
     Dates: start: 20111103

REACTIONS (3)
  - NO ADVERSE EVENT [None]
  - PAIN [None]
  - PRODUCT QUALITY ISSUE [None]
